FAERS Safety Report 12161880 (Version 1)
Quarter: 2016Q1

REPORT INFORMATION
  Report Type: Spontaneous
  Country: US (occurrence: None)
  Receive Date: 20160301
  Receipt Date: 20160301
  Transmission Date: 20160526
  Serious: Yes (Hospitalization)
  Sender: FDA-Public Use
  Company Number: M2016-017

PATIENT
  Age: 15 Year
  Sex: Female

DRUGS (1)
  1. CANDIDA ALBICANS, 1:10 W/V [Suspect]
     Active Substance: CANDIDA ALBICANS
     Indication: SKIN PAPILLOMA
     Dates: start: 20151124

REACTIONS (2)
  - Peripheral swelling [None]
  - Compartment syndrome [None]

NARRATIVE: CASE EVENT DATE: 20151124
